FAERS Safety Report 18648391 (Version 1)
Quarter: 2020Q4

REPORT INFORMATION
  Report Type: Spontaneous
  Country: US (occurrence: US)
  Receive Date: 20201222
  Receipt Date: 20201222
  Transmission Date: 20210114
  Serious: No
  Sender: FDA-Public Use
  Company Number: US-PFIZER INC-2020500885

PATIENT
  Age: 16 Year
  Sex: Male
  Weight: 59.42 kg

DRUGS (1)
  1. GENOTROPIN [Suspect]
     Active Substance: SOMATROPIN
     Indication: PUBERTY
     Dosage: UNK, ALTERNATE DAY(1.8 AND 2.0; ALTERNATING DAYS; NIGHTLY BY INJECTION)
     Dates: start: 2019

REACTIONS (3)
  - Wrong technique in device usage process [Unknown]
  - Drug dose omission by device [Unknown]
  - Device malfunction [Unknown]

NARRATIVE: CASE EVENT DATE: 20201209
